FAERS Safety Report 9036303 (Version 2)
Quarter: 2013Q1

REPORT INFORMATION
  Report Type: Spontaneous
  Country: GB (occurrence: None)
  Receive Date: 20130114
  Receipt Date: 20130118
  Transmission Date: 20140127
  Serious: Yes (Hospitalization)
  Sender: FDA-Public Use
  Company Number: 2012-004508

PATIENT
  Sex: Male

DRUGS (2)
  1. ASACOL [Suspect]
     Route: 048
     Dates: start: 20050514
  2. PRADAXA (DABIGATRAN ETEXILATE MESILATE) [Concomitant]

REACTIONS (4)
  - Acute respiratory distress syndrome [None]
  - Arthritis [None]
  - Pneumonia [None]
  - Weight decreased [None]
